FAERS Safety Report 10470996 (Version 5)
Quarter: 2014Q4

REPORT INFORMATION
  Report Type: Spontaneous
  Country: US (occurrence: US)
  Receive Date: 20140923
  Receipt Date: 20141224
  Transmission Date: 20150528
  Serious: Yes (Life-Threatening, Hospitalization, Other)
  Sender: FDA-Public Use
  Company Number: US-MERCK-1409USA010627

PATIENT
  Sex: Male
  Weight: 83.9 kg

DRUGS (3)
  1. JANUVIA [Suspect]
     Active Substance: SITAGLIPTIN PHOSPHATE
     Indication: TYPE 2 DIABETES MELLITUS
     Dosage: 100 MG, QD
     Route: 048
     Dates: start: 20090305
  2. JANUVIA [Suspect]
     Active Substance: SITAGLIPTIN PHOSPHATE
     Dosage: 50 MG, BID
     Route: 048
     Dates: start: 20120712
  3. JANUVIA [Suspect]
     Active Substance: SITAGLIPTIN PHOSPHATE
     Dosage: 50 MG, QD
     Route: 048
     Dates: start: 20090305, end: 20120615

REACTIONS (36)
  - Encephalopathy [Unknown]
  - Nausea [Unknown]
  - Hyperlipidaemia [Unknown]
  - Gastrointestinal infection [Unknown]
  - Left ventricular hypertrophy [Unknown]
  - Pericardial effusion [Unknown]
  - Pancreatic carcinoma [Unknown]
  - Anaemia postoperative [Unknown]
  - Surgery [Unknown]
  - Dehydration [Unknown]
  - Dehydration [Unknown]
  - Hypotension [Unknown]
  - Abdominal abscess [Recovering/Resolving]
  - Sciatica [Unknown]
  - Arthritis [Unknown]
  - Electrolyte imbalance [Unknown]
  - Blood glucose abnormal [Unknown]
  - Acute kidney injury [Recovering/Resolving]
  - Chronic obstructive pulmonary disease [Not Recovered/Not Resolved]
  - Tonsillectomy [Unknown]
  - Pancreatitis acute [Unknown]
  - Renal cyst [Unknown]
  - Diabetes mellitus inadequate control [Unknown]
  - Diarrhoea [Recovering/Resolving]
  - Sepsis [Recovering/Resolving]
  - Splenectomy [Recovered/Resolved]
  - Leukocytosis [Unknown]
  - Hypertension [Unknown]
  - Pulmonary mass [Unknown]
  - Abscess drainage [Unknown]
  - Diarrhoea [Unknown]
  - Coronary artery disease [Unknown]
  - Pancreatectomy [Unknown]
  - Drain placement [Unknown]
  - Vomiting [Unknown]
  - Electrolyte imbalance [Unknown]

NARRATIVE: CASE EVENT DATE: 20101101
